FAERS Safety Report 4675658-2 (Version None)
Quarter: 2005Q2

REPORT INFORMATION
  Report Type: 
  Country: None (occurrence: None)
  Receive Date: 20050527
  Receipt Date: 20050311
  Transmission Date: 20051028
  Serious: Yes (Death, Life-Threatening, Hospitalization)
  Sender: FDA-Public Use
  Company Number: PHHO2005PL04155

PATIENT
  Age: 70 Year
  Sex: Female
  Weight: 75 kg

DRUGS (1)
  1. TAMOXIFEN CITRATE [Suspect]
     Indication: BREAST CANCER
     Route: 048
     Dates: start: 20010804, end: 20050201

REACTIONS (16)
  - ATRIAL FIBRILLATION [None]
  - BRADYCARDIA [None]
  - CARDIAC ARREST [None]
  - CARDIOGENIC SHOCK [None]
  - ENDOMETRIAL HYPERTROPHY [None]
  - GASTROINTESTINAL HAEMORRHAGE [None]
  - GASTROINTESTINAL NECROSIS [None]
  - HYPOTONIA [None]
  - HYSTERECTOMY [None]
  - JEJUNECTOMY [None]
  - OLIGURIA [None]
  - PANCREATITIS ACUTE [None]
  - PERITONITIS [None]
  - RESPIRATORY FAILURE [None]
  - SMALL INTESTINAL PERFORATION [None]
  - UTERINE POLYP [None]
